FAERS Safety Report 20940595 (Version 1)
Quarter: 2022Q2

REPORT INFORMATION
  Report Type: Spontaneous
  Country: US (occurrence: US)
  Receive Date: 20220609
  Receipt Date: 20220609
  Transmission Date: 20220720
  Serious: Yes (Hospitalization)
  Sender: FDA-Public Use
  Company Number: US-BRISTOL-MYERS SQUIBB COMPANY-2022-051626

PATIENT
  Age: 70 Year
  Sex: Female

DRUGS (3)
  1. ELIQUIS [Suspect]
     Active Substance: APIXABAN
     Indication: Thrombosis
     Dosage: DOSE : 5MG;     FREQ : TWICE A DAY
     Route: 065
     Dates: start: 202203
  2. POTASSIUM FLUORIDE [Concomitant]
     Active Substance: POTASSIUM FLUORIDE
  3. FAMOTIDINE [Concomitant]
     Active Substance: FAMOTIDINE

REACTIONS (5)
  - Peripheral swelling [Unknown]
  - Pain in extremity [Unknown]
  - Fluid retention [Unknown]
  - Gait inability [Unknown]
  - Fall [Unknown]

NARRATIVE: CASE EVENT DATE: 20220301
